FAERS Safety Report 4944954-3 (Version None)
Quarter: 2006Q1

REPORT INFORMATION
  Report Type: 
  Country: None (occurrence: None)
  Receive Date: 20060117
  Receipt Date: 20041206
  Transmission Date: 20060701
  Serious: Yes (Hospitalization)
  Sender: FDA-Public Use
  Company Number: A03200404109

PATIENT
  Sex: Female

DRUGS (2)
  1. PLAVIX - CLOPIDOGREL SULFATE - TABLET - 300 MG [Suspect]
     Indication: CHEST PAIN
     Dosage: 300 MG ONCE - ORAL
     Route: 048
     Dates: start: 20041201, end: 20041201
  2. ACETYLSALICYLIC ACID SRT [Concomitant]

REACTIONS (2)
  - CATHETER SITE HAEMORRHAGE [None]
  - GASTROINTESTINAL HAEMORRHAGE [None]
